FAERS Safety Report 8414965-4 (Version None)
Quarter: 2012Q2

REPORT INFORMATION
  Report Type: 
  Country: None (occurrence: None)
  Receive Date: 20120530
  Receipt Date: 20120524
  Transmission Date: 20120825
  Serious: Yes (Death, Hospitalization)
  Sender: FDA-Public Use
  Company Number: 2012SP028307

PATIENT
  Age: 64 Year
  Sex: Male
  Weight: 72.0312 kg

DRUGS (8)
  1. DOCUSATE [Concomitant]
  2. SINGULAIR [Concomitant]
  3. BACTRIM [Concomitant]
  4. ZOVIRAX [Concomitant]
  5. PROVENTIL GENTLEHALER [Suspect]
     Indication: PRODUCT USED FOR UNKNOWN INDICATION
     Dosage: NAS
     Route: 045
  6. INOTUZUMAB OZOGAMICIN [Suspect]
     Indication: ACUTE LYMPHOCYTIC LEUKAEMIA
     Dosage: TIW;IV
     Route: 042
     Dates: start: 20111207, end: 20120125
  7. NOXAFIL [Concomitant]
  8. PREVACID [Concomitant]

REACTIONS (12)
  - VERTIGO [None]
  - CONFUSIONAL STATE [None]
  - ATRIAL FIBRILLATION [None]
  - PNEUMONIA [None]
  - PRESYNCOPE [None]
  - DIZZINESS [None]
  - NAUSEA [None]
  - HYPERHIDROSIS [None]
  - RESPIRATORY SYNCYTIAL VIRUS TEST POSITIVE [None]
  - COMPLICATIONS OF TRANSPLANT SURGERY [None]
  - SEPTIC SHOCK [None]
  - RESPIRATORY FAILURE [None]
